FAERS Safety Report 19173741 (Version 2)
Quarter: 2021Q3

REPORT INFORMATION
  Report Type: Spontaneous
  Country: DK (occurrence: DK)
  Receive Date: 20210423
  Receipt Date: 20210707
  Transmission Date: 20211014
  Serious: Yes (Other)
  Sender: FDA-Public Use
  Company Number: NVSC2021DK086224

PATIENT
  Age: 15 Year
  Sex: Female

DRUGS (1)
  1. ILARIS [Suspect]
     Active Substance: CANAKINUMAB
     Indication: STILL^S DISEASE
     Dosage: UNK
     Route: 065
     Dates: start: 201704

REACTIONS (8)
  - Central nervous system lesion [Unknown]
  - Serum ferritin increased [Unknown]
  - Interstitial lung disease [Unknown]
  - Seizure [Unknown]
  - Lung disorder [Unknown]
  - Pneumocystis jirovecii pneumonia [Unknown]
  - Lung diffusion disorder [Unknown]
  - Red blood cell sedimentation rate increased [Unknown]
